FAERS Safety Report 16081772 (Version 1)
Quarter: 2019Q1

REPORT INFORMATION
  Report Type: Spontaneous
  Country: US (occurrence: US)
  Receive Date: 20190316
  Receipt Date: 20190316
  Transmission Date: 20190418
  Serious: No
  Sender: FDA-Public Use
  Company Number: US-NEXGEN PHARMA, INC.-2064132

PATIENT
  Age: 31 Year
  Sex: Male
  Weight: 63.5 kg

DRUGS (1)
  1. CHENODAL [Suspect]
     Active Substance: CHENODIOL
     Indication: XANTHOMATOSIS
     Route: 048
     Dates: start: 200912

REACTIONS (1)
  - Alanine aminotransferase increased [Unknown]
